FAERS Safety Report 7546639-6 (Version None)
Quarter: 2011Q2

REPORT INFORMATION
  Report Type: 
  Country: None (occurrence: None)
  Receive Date: 20110614
  Receipt Date: 20110607
  Transmission Date: 20111010
  Serious: Yes (Hospitalization, Other)
  Sender: FDA-Public Use
  Company Number: US-SANOFI-AVENTIS-2011SA032800

PATIENT
  Age: 80 Year
  Sex: Female
  Weight: 74.84 kg

DRUGS (18)
  1. POTASSIUM CHLORIDE [Concomitant]
  2. ASPIRIN [Concomitant]
  3. BETHANECHOL [Concomitant]
  4. SOLOSTAR [Suspect]
     Indication: TYPE 2 DIABETES MELLITUS
     Dates: start: 20100101
  5. DIPYRIDAMOLE [Concomitant]
     Dosage: 3 A DAY
  6. ISOSORBIDE MONONITRATE [Concomitant]
     Indication: CHEST PAIN
  7. COLACE [Concomitant]
  8. SOLOSTAR [Suspect]
  9. TAMSULOSIN HYDROCHLORIDE [Concomitant]
  10. CENTRUM SILVER [Concomitant]
     Dosage: 1 A DAY
  11. VITAMIN E [Concomitant]
  12. PRAVASTATIN [Concomitant]
     Dosage: HALF A DAY
  13. ACTONEL [Concomitant]
  14. LANTUS [Suspect]
     Indication: TYPE 2 DIABETES MELLITUS
     Dosage: EVERY MORNING DOSE:30 UNIT(S)
     Route: 058
     Dates: start: 20100101
  15. NOVOLOG [Concomitant]
     Dosage: 0 { 70, 5=70-120 AND 10}120
  16. FUROSEMIDE [Concomitant]
     Indication: DIURETIC THERAPY
  17. JANUVIA [Concomitant]
  18. ALL OTHER THERAPEUTIC PRODUCTS [Concomitant]

REACTIONS (6)
  - ELECTROLYTE IMBALANCE [None]
  - FEMUR FRACTURE [None]
  - EXPIRED DRUG ADMINISTERED [None]
  - IMPAIRED HEALING [None]
  - WEIGHT DECREASED [None]
  - BLOOD GLUCOSE INCREASED [None]
